FAERS Safety Report 10091244 (Version 1)
Quarter: 2014Q2

REPORT INFORMATION
  Report Type: Spontaneous
  Country: CN (occurrence: CN)
  Receive Date: 20140421
  Receipt Date: 20140421
  Transmission Date: 20141212
  Serious: Yes (Hospitalization)
  Sender: FDA-Public Use
  Company Number: CN-PFIZER INC-2014105705

PATIENT
  Age: 69 Year
  Sex: Male
  Weight: 60 kg

DRUGS (2)
  1. DIFLUCAN [Suspect]
     Indication: FUNGAL INFECTION
     Dosage: 200 MG, 1X/DAY
     Route: 041
     Dates: start: 20131115, end: 20131115
  2. MOXIFLOXACIN [Concomitant]
     Indication: INFECTION
     Dosage: UNK

REACTIONS (5)
  - Hypoaesthesia [Recovering/Resolving]
  - Tic [Recovering/Resolving]
  - Palpitations [Recovering/Resolving]
  - Dysphoria [Recovering/Resolving]
  - Malaise [Recovering/Resolving]
